FAERS Safety Report 23661997 (Version 1)
Quarter: 2024Q1

REPORT INFORMATION
  Report Type: Spontaneous
  Country: US (occurrence: US)
  Receive Date: 20240322
  Receipt Date: 20240322
  Transmission Date: 20240410
  Serious: Yes (Hospitalization)
  Sender: FDA-Public Use
  Company Number: US-MELINTA THERAPEUTICS, LLC-US-MLNT-24-00169

PATIENT

DRUGS (2)
  1. METOPROLOL SUCCINATE [Suspect]
     Active Substance: METOPROLOL SUCCINATE
     Indication: Product used for unknown indication
     Dosage: NOT PROVIDED, UNK
     Route: 048
  2. OCREVUS [Suspect]
     Active Substance: OCRELIZUMAB
     Indication: Multiple sclerosis
     Dosage: TWO HALF INFUSIONS

REACTIONS (1)
  - Tachycardia [Recovered/Resolved]
